FAERS Safety Report 6179602-0 (Version None)
Quarter: 2009Q2

REPORT INFORMATION
  Report Type: 
  Country: None (occurrence: None)
  Receive Date: 20090501
  Receipt Date: 20090501
  Transmission Date: 20091009
  Serious: Yes (Other)
  Sender: FDA-Public Use
  Company Number: None

PATIENT
  Age: 48 Year
  Sex: Female
  Weight: 86.637 kg

DRUGS (4)
  1. WELLBUTRIN SR [Suspect]
     Indication: ANXIETY
     Dosage: 1 TABLET DAILY PO
     Route: 048
     Dates: start: 20090423, end: 20090423
  2. WELLBUTRIN SR [Suspect]
     Indication: HYPERTENSION
     Dosage: 1 TABLET DAILY PO
     Route: 048
     Dates: start: 20090423, end: 20090423
  3. WELLBUTRIN SR [Suspect]
     Indication: SMOKING CESSATION THERAPY
     Dosage: 1 TABLET DAILY PO
     Route: 048
     Dates: start: 20090423, end: 20090423
  4. BENICAR [Suspect]

REACTIONS (2)
  - ANGIOEDEMA [None]
  - DRUG HYPERSENSITIVITY [None]
